FAERS Safety Report 5113605-X (Version None)
Quarter: 2006Q3

REPORT INFORMATION
  Report Type: 
  Country: None (occurrence: None)
  Receive Date: 20060920
  Receipt Date: 20060907
  Transmission Date: 20061208
  Serious: Yes (Hospitalization)
  Sender: FDA-Public Use
  Company Number: 2006111039

PATIENT
  Age: 54 Year
  Sex: Male

DRUGS (5)
  1. LYRICA [Suspect]
     Indication: NEURALGIA
     Dosage: ORAL
     Route: 048
     Dates: start: 20060701, end: 20060701
  2. TEARDROPS             (POLYVIDONE, POLYVINYL ALCOHOL) [Concomitant]
  3. ZOFRAN [Concomitant]
  4. ACETAMINOPHEN [Concomitant]
  5. MORPHINE [Concomitant]

REACTIONS (4)
  - BLOOD ALBUMIN DECREASED [None]
  - DYSPNOEA [None]
  - OEDEMA PERIPHERAL [None]
  - PLEURAL EFFUSION [None]
